FAERS Safety Report 5485451-9 (Version None)
Quarter: 2007Q4

REPORT INFORMATION
  Report Type: 
  Country: None (occurrence: None)
  Receive Date: 20071014
  Receipt Date: 20071014
  Transmission Date: 20080405
  Serious: Yes (Hospitalization)
  Sender: FDA-Public Use
  Company Number: None

PATIENT
  Sex: Female

DRUGS (1)
  1. PHENYTOIN 100 MG [Suspect]
     Indication: CONVULSION
     Dosage: 100 MG  TID  PO
     Route: 048
     Dates: start: 20070301, end: 20070305

REACTIONS (1)
  - STEVENS-JOHNSON SYNDROME [None]
